FAERS Safety Report 15507412 (Version 5)
Quarter: 2019Q2

REPORT INFORMATION
  Report Type: Spontaneous
  Country: RO (occurrence: RO)
  Receive Date: 20181016
  Receipt Date: 20190425
  Transmission Date: 20190711
  Serious: Yes (Hospitalization, Other)
  Sender: FDA-Public Use
  Company Number: RO-MYLANLABS-2018M1076073

PATIENT
  Age: 19 Year
  Sex: Female
  Weight: 45.6 kg

DRUGS (9)
  1. SERTRALINE [Suspect]
     Active Substance: SERTRALINE HYDROCHLORIDE
     Indication: DEPRESSION
  2. ACUTIL                             /09541101/ [Concomitant]
     Indication: PRODUCT USED FOR UNKNOWN INDICATION
     Dosage: 1 DF, DAILY (1 TABLET PER DAY)
     Route: 065
  3. FERRO FOLGAMMA [Concomitant]
     Indication: ANAEMIA
     Dosage: 3 DF, DAILY (THREE TABLETS PER DAY)
     Route: 065
  4. VITAMIN B1 [Concomitant]
     Active Substance: THIAMINE HYDROCHLORIDE
     Indication: PRODUCT USED FOR UNKNOWN INDICATION
     Dosage: INJECTABLE/ INJECTION FOR TWO WEEKS
     Route: 065
  5. VITAMIN B6 [Concomitant]
     Active Substance: PYRIDOXINE HYDROCHLORIDE
     Indication: PRODUCT USED FOR UNKNOWN INDICATION
     Dosage: INJECTABLE/ INJECTION FOR TWO WEEKS
     Route: 065
  6. OLANZAPINE. [Suspect]
     Active Substance: OLANZAPINE
     Indication: ANOREXIA NERVOSA
  7. SERTRALINE [Suspect]
     Active Substance: SERTRALINE HYDROCHLORIDE
     Indication: ANOREXIA NERVOSA
     Dosage: 50 MG, BID
     Route: 065
  8. MALTOFER                           /00023548/ [Concomitant]
     Active Substance: IRON POLYMALTOSE
     Indication: ANAEMIA
     Dosage: 2 DF, DAILY (TWO TABLETS PER DAY)
     Route: 065
  9. OLANZAPINE. [Suspect]
     Active Substance: OLANZAPINE
     Indication: DEPRESSION
     Dosage: 10 MG, QD (1 TABLET PER DAY)
     Route: 065

REACTIONS (2)
  - Weight decreased [Recovered/Resolved]
  - Suicide attempt [Recovered/Resolved]
